FAERS Safety Report 9564444 (Version 2)
Quarter: 2013Q4

REPORT INFORMATION
  Report Type: Spontaneous
  Country: DE (occurrence: DE)
  Receive Date: 20130930
  Receipt Date: 20131001
  Transmission Date: 20140711
  Serious: Yes (Other)
  Sender: FDA-Public Use
  Company Number: DE-BRISTOL-MYERS SQUIBB COMPANY-19458983

PATIENT
  Age: 56 Year
  Sex: Male
  Weight: 95 kg

DRUGS (4)
  1. YERVOY [Suspect]
     Indication: MALIGNANT MELANOMA
     Dosage: INFUSION?291 MG
     Route: 042
     Dates: start: 2013, end: 20130828
  2. ACETYLSALICYLIC ACID [Concomitant]
  3. L-THYROXINE [Concomitant]
  4. CANDESARTAN [Concomitant]

REACTIONS (3)
  - Cerebral ischaemia [Recovered/Resolved]
  - Cough [Not Recovered/Not Resolved]
  - Cerebrovascular accident [Unknown]
